FAERS Safety Report 8432437-8 (Version None)
Quarter: 2012Q2

REPORT INFORMATION
  Report Type: 
  Country: None (occurrence: None)
  Receive Date: 20120613
  Receipt Date: 20120601
  Transmission Date: 20120825
  Serious: Yes (Hospitalization, Other)
  Sender: FDA-Public Use
  Company Number: NL-ELI_LILLY_AND_COMPANY-NL201202001365

PATIENT
  Sex: Female
  Weight: 75 kg

DRUGS (3)
  1. CISPLATIN [Suspect]
     Indication: NON-SMALL CELL LUNG CANCER
     Dosage: 135 MG,EVERY THREE WEEKS
     Route: 042
     Dates: start: 20111028
  2. PEMETREXED [Suspect]
     Indication: NON-SMALL CELL LUNG CANCER
     Dosage: 800 MG, EVERY THREE WEEKS
     Route: 042
     Dates: start: 20111028
  3. CISPLATIN [Suspect]
     Dosage: 127 MG, EVERY 3 WEEKS
     Route: 042
     Dates: start: 20111209

REACTIONS (5)
  - DEHYDRATION [None]
  - HYPOKALAEMIA [None]
  - FEAR [None]
  - HYPONATRAEMIA [None]
  - DECREASED APPETITE [None]
